FAERS Safety Report 8825502 (Version 1)
Quarter: 2012Q4

REPORT INFORMATION
  Report Type: 
  Country: CN (occurrence: CN)
  Receive Date: 20121004
  Receipt Date: 20121004
  Transmission Date: 20130627
  Serious: Yes (Hospitalization)
  Sender: FDA-Public Use
  Company Number: CN-JNJFOC-20120912775

PATIENT
  Age: 60 Year
  Sex: Male

DRUGS (3)
  1. TYLENOL COLD [Suspect]
     Indication: PYREXIA
     Route: 048
     Dates: start: 20090320, end: 20090320
  2. CEFUROXIME SODIUM [Suspect]
     Indication: PYREXIA
     Route: 042
     Dates: start: 20090320
  3. AN UNKNOWN MEDICATION [Suspect]
     Indication: PYREXIA
     Dosage: 2 packages, 3 times a day
     Route: 065
     Dates: start: 20090320

REACTIONS (2)
  - White blood cell count decreased [Recovered/Resolved]
  - Drug hypersensitivity [Unknown]
